FAERS Safety Report 8270029-4 (Version None)
Quarter: 2012Q1

REPORT INFORMATION
  Report Type: 
  Country: None (occurrence: None)
  Receive Date: 20120327
  Receipt Date: 20100427
  Transmission Date: 20120608
  Serious: Yes (Disabling)
  Sender: FDA-Public Use
  Company Number: PHHY2010US18101

PATIENT
  Age: 32 Year
  Sex: Male

DRUGS (1)
  1. GLEEVEC [Suspect]
     Indication: CHRONIC MYELOID LEUKAEMIA
     Dosage: 400 MG, QD, ORAL
     Route: 048

REACTIONS (5)
  - DRUG RESISTANCE [None]
  - NAUSEA [None]
  - PAIN IN EXTREMITY [None]
  - DECREASED APPETITE [None]
  - TREATMENT NONCOMPLIANCE [None]
